FAERS Safety Report 12042890 (Version 1)
Quarter: 2016Q1

REPORT INFORMATION
  Report Type: Spontaneous
  Country: US (occurrence: US)
  Receive Date: 20160208
  Receipt Date: 20160208
  Transmission Date: 20160526
  Serious: Yes (Hospitalization, Disabling, Other)
  Sender: FDA-Public Use
  Company Number: US-PFIZER INC-2016061176

PATIENT
  Sex: Male

DRUGS (1)
  1. ADVIL [Suspect]
     Active Substance: IBUPROFEN
     Indication: MYALGIA
     Dosage: UNK, (ONE EVERY 4-6 HOURS)
     Dates: start: 20160104, end: 20160105

REACTIONS (8)
  - Headache [Unknown]
  - Bedridden [Unknown]
  - Pain [Unknown]
  - Migraine [Unknown]
  - Dizziness [Unknown]
  - Condition aggravated [Unknown]
  - Nerve injury [Unknown]
  - Nausea [Unknown]

NARRATIVE: CASE EVENT DATE: 201601
